FAERS Safety Report 10049763 (Version 2)
Quarter: 2014Q2

REPORT INFORMATION
  Report Type: Spontaneous
  Country: US (occurrence: US)
  Receive Date: 20140401
  Receipt Date: 20140401
  Transmission Date: 20141212
  Serious: Yes (Hospitalization, Other)
  Sender: FDA-Public Use
  Company Number: US-SA-POMP-1003147

PATIENT
  Age: 17 Year
  Sex: Female
  Weight: 45 kg

DRUGS (12)
  1. LUMIZYME [Suspect]
     Indication: GLYCOGEN STORAGE DISEASE TYPE II
     Dosage: 8.8 MG/KG, QW
     Route: 042
     Dates: start: 20101231
  2. LUMIZYME [Suspect]
     Indication: GLYCOGEN STORAGE DISEASE TYPE II
     Route: 042
     Dates: start: 201301
  3. DIPHENHYDRAMINE [Concomitant]
     Indication: PREMEDICATION
     Dosage: UNK
  4. IBUPROFEN [Concomitant]
     Indication: PREMEDICATION
     Dosage: UNK
  5. SERTRALINE [Concomitant]
     Indication: PRODUCT USED FOR UNKNOWN INDICATION
     Dosage: 50 MG, QD
  6. AMITRIPTYLINE HYDROCHLORIDE [Concomitant]
     Dosage: 50 MG, QD
  7. EPHEDRINE [Concomitant]
     Dosage: 25 MG, BID
     Route: 048
  8. GABAPENTIN [Concomitant]
     Dosage: 300 MG, TID
     Route: 048
  9. CELECOXIB [Concomitant]
     Dosage: 100 MG, BID
     Route: 048
  10. PARACETAMOL [Concomitant]
     Dosage: UNK
  11. PREDNISONE [Concomitant]
     Dosage: 20 MG (3 TABLETS), QD
     Route: 048
  12. SERTRALINE [Concomitant]
     Dosage: 50 MG (1 TABLET), QD (EVERY MORNING)
     Route: 048

REACTIONS (8)
  - Tetany [Not Recovered/Not Resolved]
  - Myopathy [Not Recovered/Not Resolved]
  - Myositis [Not Recovered/Not Resolved]
  - Pain [Not Recovered/Not Resolved]
  - Muscle atrophy [Not Recovered/Not Resolved]
  - Paraesthesia [Recovered/Resolved]
  - Headache [Not Recovered/Not Resolved]
  - Muscle spasms [Recovered/Resolved]
